FAERS Safety Report 15534747 (Version 1)
Quarter: 2018Q4

REPORT INFORMATION
  Report Type: Other
  Country: IT (occurrence: IT)
  Receive Date: 20181022
  Receipt Date: 20181022
  Transmission Date: 20190205
  Serious: Yes (Life-Threatening, Other)
  Sender: FDA-Public Use
  Company Number: IT-LUPIN PHARMACEUTICALS INC.-2018-07224

PATIENT
  Age: 21 Year
  Sex: Female

DRUGS (4)
  1. PAROXETINE. [Suspect]
     Active Substance: PAROXETINE
     Indication: PERSONALITY DISORDER
     Dosage: 780 MG, TOTAL
     Route: 048
     Dates: start: 20180725, end: 20180725
  2. EFEXOR [Suspect]
     Active Substance: VENLAFAXINE HYDROCHLORIDE
     Indication: PERSONALITY DISORDER
     Dosage: 3 G, TOTAL (150 MG)
     Route: 048
     Dates: start: 20180725, end: 20180725
  3. QUETIAPINE FUMARATE. [Suspect]
     Active Substance: QUETIAPINE FUMARATE
     Indication: PERSONALITY DISORDER
     Dosage: 2.2 G, TOTAL
     Route: 048
     Dates: start: 20180725, end: 20180725
  4. DELORAZEPAM [Suspect]
     Active Substance: DELORAZEPAM
     Indication: PERSONALITY DISORDER
     Dosage: 20 DF, TOTAL
     Route: 048
     Dates: start: 20180725, end: 20180725

REACTIONS (4)
  - Tachycardia [Unknown]
  - Sopor [Unknown]
  - Drug abuse [Unknown]
  - Intentional self-injury [Unknown]

NARRATIVE: CASE EVENT DATE: 20180725
